FAERS Safety Report 5008525-5 (Version None)
Quarter: 2006Q2

REPORT INFORMATION
  Report Type: 
  Country: None (occurrence: None)
  Receive Date: 20060523
  Receipt Date: 20060513
  Transmission Date: 20061013
  Serious: Yes (Hospitalization)
  Sender: FDA-Public Use
  Company Number: PHRM2006FR01559

PATIENT
  Sex: Male

DRUGS (1)
  1. NEORAL [Suspect]
     Indication: HEART TRANSPLANT
     Route: 048

REACTIONS (3)
  - ABDOMINAL PAIN LOWER [None]
  - GASTRIC HAEMORRHAGE [None]
  - VOMITING [None]
